FAERS Safety Report 11131236 (Version 1)
Quarter: 2015Q2

REPORT INFORMATION
  Report Type: Spontaneous
  Country: MA (occurrence: MA)
  Receive Date: 20150522
  Receipt Date: 20150522
  Transmission Date: 20150821
  Serious: Yes (Other)
  Sender: FDA-Public Use
  Company Number: MA-MYLANLABS-2015M1016906

PATIENT

DRUGS (2)
  1. CIPROFLOXACIN. [Suspect]
     Active Substance: CIPROFLOXACIN
     Dosage: UNK
     Route: 061
  2. CIPROFLOXACIN. [Suspect]
     Active Substance: CIPROFLOXACIN
     Route: 047

REACTIONS (4)
  - Corneal opacity [Not Recovered/Not Resolved]
  - Incorrect drug administration duration [Recovered/Resolved]
  - Corneal deposits [Unknown]
  - Visual acuity reduced [Not Recovered/Not Resolved]
